FAERS Safety Report 6458976-7 (Version None)
Quarter: 2009Q4

REPORT INFORMATION
  Report Type: 
  Country: None (occurrence: None)
  Receive Date: 20091127
  Receipt Date: 20091116
  Transmission Date: 20100525
  Serious: Yes (Life-Threatening, Hospitalization)
  Sender: FDA-Public Use
  Company Number: FR-ELI_LILLY_AND_COMPANY-FR200911003728

PATIENT
  Sex: Female

DRUGS (6)
  1. ZYPREXA [Suspect]
     Dosage: 5 MG, DAILY (1/D)
     Route: 048
     Dates: end: 20090813
  2. DAFALGAN [Concomitant]
     Dosage: UNK, UNKNOWN
     Route: 047
     Dates: start: 20090813, end: 20090813
  3. NOCTRAN 10 [Concomitant]
     Dosage: UNK, UNKNOWN
     Route: 048
     Dates: start: 20090813, end: 20090813
  4. XANAX [Concomitant]
     Dosage: UNK, UNKNOWN
     Route: 048
     Dates: start: 20090813, end: 20090813
  5. IBUPROFENE [Concomitant]
     Dosage: 400 MG, DAILY (1/D)
     Route: 048
     Dates: end: 20090813
  6. IXEL [Concomitant]
     Dosage: 50 MG, 3/D
     Route: 048
     Dates: end: 20090813

REACTIONS (6)
  - COMA [None]
  - CYTOLYTIC HEPATITIS [None]
  - PNEUMONIA ASPIRATION [None]
  - PULMONARY EMBOLISM [None]
  - RENAL FAILURE ACUTE [None]
  - SUICIDE ATTEMPT [None]
